FAERS Safety Report 9867732 (Version 1)
Quarter: 2014Q1

REPORT INFORMATION
  Report Type: Spontaneous
  Country: US (occurrence: US)
  Receive Date: 20140204
  Receipt Date: 20140204
  Transmission Date: 20141002
  Serious: Yes (Hospitalization, Other)
  Sender: FDA-Public Use
  Company Number: US-ROXANE LABORATORIES, INC.-2014-RO-00135RO

PATIENT
  Age: 45 Year
  Sex: Male

DRUGS (2)
  1. PREDNISONE [Suspect]
     Indication: CHEMICAL INJURY
     Route: 048
  2. PREDNISONE [Suspect]
     Indication: OCULAR SARCOIDOSIS

REACTIONS (5)
  - Cognitive disorder [Not Recovered/Not Resolved]
  - Substance-induced psychotic disorder [Unknown]
  - Dementia [Unknown]
  - Paranoia [Not Recovered/Not Resolved]
  - Cerebral atrophy [Unknown]
